FAERS Safety Report 7124488-0 (Version None)
Quarter: 2010Q4

REPORT INFORMATION
  Report Type: 
  Country: None (occurrence: None)
  Receive Date: 20101128
  Receipt Date: 20101122
  Transmission Date: 20110411
  Serious: Yes (Hospitalization)
  Sender: FDA-Public Use
  Company Number: US-AMGEN-KDC438357

PATIENT
  Sex: Male
  Weight: 72.6 kg

DRUGS (18)
  1. PANITUMUMAB [Suspect]
     Indication: COLORECTAL CANCER
     Dosage: 6 MG/KG, Q2WK
     Route: 042
     Dates: start: 20100706, end: 20100902
  2. IRINOTECAN HCL [Suspect]
     Dosage: 293 MG, Q2WK
     Route: 042
     Dates: start: 20100706
  3. FLUOROURACIL [Suspect]
     Dosage: UNK UNK, Q2WK
     Route: 042
     Dates: start: 20100706
  4. FOLINIC ACID [Concomitant]
     Dosage: 652 MG, Q2WK
     Route: 042
     Dates: start: 20100706
  5. DOXYCYCLINE [Concomitant]
     Dosage: UNK UNK, BID
     Route: 048
     Dates: start: 20100720
  6. ALLOPURINOL [Concomitant]
     Dosage: 100 MG, QD
  7. ENALAPRIL MALEATE [Concomitant]
     Dosage: 2.5 MG, BID
  8. FUROSEMIDE [Concomitant]
     Dosage: 40 MG, QD
  9. CLOPIDOGREL BISULFATE [Concomitant]
     Dosage: 75 MG, QD
  10. PYRIDOXINE HCL [Concomitant]
     Dosage: 50 MG, QD
  11. FOLIC ACID [Concomitant]
     Dosage: 1 MG, QD
  12. POTASSIUM CHLORATE [Concomitant]
     Dosage: 10 MEQ, QD
  13. PROPRANOLOL HYDROCHLORIDE [Concomitant]
     Dosage: 30 MG, QD
  14. THIAMINE HCL [Concomitant]
     Dosage: 100 MG, QD
  15. TAMSULOSIN HCL [Concomitant]
     Dosage: .4 MG, QD
  16. MORPHINE SULFATE [Concomitant]
     Dosage: 15 MG, PRN
     Route: 048
  17. DURAGESIC-100 [Concomitant]
     Route: 062
  18. CLINDAMYCIN PHOSPHATE [Concomitant]
     Route: 061

REACTIONS (7)
  - ANAEMIA [None]
  - DEHYDRATION [None]
  - DIARRHOEA [None]
  - HYPOMAGNESAEMIA [None]
  - PNEUMONIA STAPHYLOCOCCAL [None]
  - PULMONARY EMBOLISM [None]
  - SINUS TACHYCARDIA [None]
